FAERS Safety Report 10181766 (Version 1)
Quarter: 2014Q2

REPORT INFORMATION
  Report Type: Spontaneous
  Country: US (occurrence: US)
  Receive Date: 20140519
  Receipt Date: 20140519
  Transmission Date: 20141212
  Serious: No
  Sender: FDA-Public Use
  Company Number: US-009507513-1404USA012901

PATIENT
  Sex: Female

DRUGS (2)
  1. OXYTROL FOR WOMEN [Suspect]
     Indication: PRODUCT USED FOR UNKNOWN INDICATION
     Dosage: UNK, UNKNOWN
     Route: 062
     Dates: start: 20131116, end: 201404
  2. TAMOXIFEN CITRATE [Concomitant]
     Indication: BREAST CANCER
     Dosage: UNK, UNKNOWN

REACTIONS (9)
  - Hypertension [Recovered/Resolved]
  - Visual impairment [Unknown]
  - Urinary retention [Unknown]
  - Constipation [Unknown]
  - Skin fissures [Recovered/Resolved]
  - Swelling face [Unknown]
  - Urinary straining [Unknown]
  - Urinary incontinence [Unknown]
  - Dry eye [Recovered/Resolved]
